FAERS Safety Report 21496065 (Version 2)
Quarter: 2022Q4

REPORT INFORMATION
  Report Type: Report from Study
  Country: US (occurrence: US)
  Receive Date: 20221022
  Receipt Date: 20221030
  Transmission Date: 20230113
  Serious: Yes (Other)
  Sender: FDA-Public Use
  Company Number: US-drreddys-CLI/USA/22/0155923

PATIENT
  Age: 18 Year
  Sex: Female

DRUGS (3)
  1. ACCUTANE [Suspect]
     Active Substance: ISOTRETINOIN
     Indication: Product used for unknown indication
     Dosage: RMA ISSUE DATE: 29 MARCH 2022 05:04:06 PM, 08 JULY 2022 12:03:06 PM, 05 AUGUST 2022 10:12:56 AM, 08
     Dates: start: 20220329, end: 20221004
  2. ACCUTANE [Suspect]
     Active Substance: ISOTRETINOIN
     Dosage: RMA ISSUE DATE: 03 MAY 2022 12:43:48 PM, 07 JUNE 2022 04:36:04 PM
  3. JUNEL FE OCP [Concomitant]
     Indication: Product used for unknown indication
     Dates: start: 20220928

REACTIONS (2)
  - Abortion induced [Unknown]
  - Exposure during pregnancy [Unknown]

NARRATIVE: CASE EVENT DATE: 20221006
